FAERS Safety Report 21706555 (Version 1)
Quarter: 2022Q4

REPORT INFORMATION
  Report Type: Spontaneous
  Country: US (occurrence: None)
  Receive Date: 20221208
  Receipt Date: 20221208
  Transmission Date: 20230113
  Serious: Yes (Life-Threatening)
  Sender: FDA-Public Use
  Company Number: None

PATIENT
  Age: 60 Year
  Sex: Female
  Weight: 66.6 kg

DRUGS (6)
  1. QULIPTA [Suspect]
     Active Substance: ATOGEPANT
     Indication: Migraine
     Dosage: OTHER QUANTITY : OTHER QUANTITY : 4 CAPSULE(S);?FREQUENCY : AT BEDTIME;?;?OTHER QUANTITY : 4 CAPSULE
     Route: 048
     Dates: start: 20221114, end: 20221126
  2. IMITREX [Suspect]
     Active Substance: SUMATRIPTAN SUCCINATE
  3. PROMETHAZINE HYDROCHLORIDE [Concomitant]
     Active Substance: PROMETHAZINE HYDROCHLORIDE
  4. ketrolac [Concomitant]
  5. TRAMADOL [Concomitant]
     Active Substance: TRAMADOL
  6. tens unit [Concomitant]

REACTIONS (9)
  - Feeling abnormal [None]
  - Mental impairment [None]
  - Lethargy [None]
  - Incorrect dose administered [None]
  - Depressed mood [None]
  - Nervousness [None]
  - Fatigue [None]
  - Fatigue [None]
  - Migraine [None]

NARRATIVE: CASE EVENT DATE: 20221127
